FAERS Safety Report 17889697 (Version 1)
Quarter: 2020Q2

REPORT INFORMATION
  Report Type: Spontaneous
  Country: US (occurrence: US)
  Receive Date: 20200612
  Receipt Date: 20200612
  Transmission Date: 20200714
  Serious: Yes (Hospitalization)
  Sender: FDA-Public Use
  Company Number: None

PATIENT
  Age: 74 Year
  Sex: Male
  Weight: 99 kg

DRUGS (1)
  1. PENICILLIN (PENICILLIN V K 500MG TAB) [Suspect]
     Active Substance: PENICILLIN V POTASSIUM
     Indication: OTITIS MEDIA
     Route: 048
     Dates: start: 20200215, end: 20200221

REACTIONS (5)
  - Serum sickness [None]
  - Pruritus [None]
  - Rash [None]
  - Eosinophilia [None]
  - Urticaria [None]

NARRATIVE: CASE EVENT DATE: 20200221
